FAERS Safety Report 7989232-3 (Version None)
Quarter: 2011Q4

REPORT INFORMATION
  Report Type: 
  Country: None (occurrence: None)
  Receive Date: 20111007
  Receipt Date: 20110706
  Transmission Date: 20120403
  Serious: No
  Sender: FDA-Public Use
  Company Number: 2011HGS-002365

PATIENT
  Sex: Female

DRUGS (2)
  1. BENLYSTA [Suspect]
     Indication: SYSTEMIC LUPUS ERYTHEMATOSUS
     Dosage: 10 MG/KG, 1 IN 14 D, INTRAVENOUS DRIP
     Route: 041
     Dates: start: 20110601
  2. RITUXAN [Suspect]

REACTIONS (3)
  - FATIGUE [None]
  - INFLUENZA LIKE ILLNESS [None]
  - PAIN [None]
